FAERS Safety Report 5564642-2 (Version None)
Quarter: 2007Q4

REPORT INFORMATION
  Report Type: 
  Country: None (occurrence: None)
  Receive Date: 20071212
  Receipt Date: 20071126
  Transmission Date: 20080405
  Serious: Yes (Congenital Anomaly)
  Sender: FDA-Public Use
  Company Number: 8028357

PATIENT
  Sex: Male
  Weight: 3.06 kg

DRUGS (3)
  1. KEPPRA [Suspect]
     Dosage: 2 G 2/D TRP
     Route: 064
  2. CLOBAZAM [Suspect]
     Dosage: 10 MG 2/D TRP
     Route: 064
  3. VALPROATE SODIUM [Suspect]
     Indication: CONVULSION
     Dosage: 800 MG 2/D PO
     Route: 048

REACTIONS (2)
  - DRUG EXPOSURE DURING PREGNANCY [None]
  - FOETAL ANTICONVULSANT SYNDROME [None]
